FAERS Safety Report 9549866 (Version 1)
Quarter: 2013Q3

REPORT INFORMATION
  Report Type: Spontaneous
  Country: TR (occurrence: TR)
  Receive Date: 20130924
  Receipt Date: 20130924
  Transmission Date: 20140515
  Serious: Yes (Hospitalization, Other)
  Sender: FDA-Public Use
  Company Number: TR-WATSON-2013-16689

PATIENT
  Age: 7 Year
  Sex: Male

DRUGS (1)
  1. LIDOCAINE HYDROCHLORIDE 1% WITH EPINEPHRINE (WATSON LABORATORIES) [Suspect]
     Indication: LOCAL ANAESTHESIA
     Dosage: UNK
     Route: 042

REACTIONS (1)
  - Penile vein thrombosis [Recovered/Resolved]
